FAERS Safety Report 8846244 (Version 1)
Quarter: 2012Q4

REPORT INFORMATION
  Report Type: 
  Country: US (occurrence: US)
  Receive Date: 20121017
  Receipt Date: 20121017
  Transmission Date: 20130627
  Serious: No
  Sender: FDA-Public Use
  Company Number: US-B.I. PHARMACEUTICALS,INC./RIDGEFIELD-2012-BP-23913BP

PATIENT
  Age: 54 Year
  Sex: Female
  Weight: 85 kg

DRUGS (2)
  1. SPIRIVA [Suspect]
     Indication: CHRONIC OBSTRUCTIVE PULMONARY DISEASE
     Dosage: 18 mcg
     Route: 055
     Dates: start: 201205
  2. ADVAIR [Concomitant]
     Route: 055

REACTIONS (5)
  - Chronic obstructive pulmonary disease [Recovered/Resolved]
  - Hypertension [Recovered/Resolved]
  - Chest pain [Recovered/Resolved]
  - Product quality issue [Recovered/Resolved]
  - Product quality issue [Recovered/Resolved]
